FAERS Safety Report 9732623 (Version 1)
Quarter: 2013Q4

REPORT INFORMATION
  Report Type: Spontaneous
  Country: SG (occurrence: SG)
  Receive Date: 20131205
  Receipt Date: 20131205
  Transmission Date: 20140711
  Serious: Yes (Other)
  Sender: FDA-Public Use
  Company Number: SG-BAYER-2013-145213

PATIENT
  Age: 56 Year
  Sex: Female

DRUGS (1)
  1. GLUCOBAY 100 TABLET 100 MG [Suspect]

REACTIONS (1)
  - Palpitations [Unknown]
